FAERS Safety Report 10245303 (Version 1)
Quarter: 2014Q2

REPORT INFORMATION
  Report Type: Spontaneous
  Country: CA (occurrence: CA)
  Receive Date: 20140618
  Receipt Date: 20140618
  Transmission Date: 20141212
  Serious: Yes (Life-Threatening, Hospitalization)
  Sender: FDA-Public Use
  Company Number: CA-ROCHE-1419554

PATIENT
  Age: 52 Year
  Sex: Female
  Weight: 84 kg

DRUGS (5)
  1. AVASTIN [Suspect]
     Indication: PRODUCT USED FOR UNKNOWN INDICATION
     Dosage: THERAPY DURATION : 15 DAYS
     Route: 042
  2. ACCURETIC [Concomitant]
     Route: 065
  3. FLUOROURACIL [Concomitant]
  4. IRINOTECAN HYDROCHLORIDE [Concomitant]
  5. LEUCOVORIN [Concomitant]

REACTIONS (2)
  - Cerebral thrombosis [Unknown]
  - Convulsion [Unknown]
